FAERS Safety Report 7044027-2 (Version None)
Quarter: 2010Q4

REPORT INFORMATION
  Report Type: 
  Country: None (occurrence: None)
  Receive Date: 20101013
  Receipt Date: 20101009
  Transmission Date: 20110411
  Serious: Yes (Other)
  Sender: FDA-Public Use
  Company Number: US-AMGEN-KDL444686

PATIENT
  Sex: Female

DRUGS (1)
  1. ENBREL [Suspect]
     Indication: PRODUCT USED FOR UNKNOWN INDICATION
     Route: 058
     Dates: start: 20081001

REACTIONS (4)
  - COLITIS ULCERATIVE [None]
  - INCREASED TENDENCY TO BRUISE [None]
  - SINUSITIS [None]
  - URINARY TRACT INFECTION [None]
